FAERS Safety Report 9380284 (Version 1)
Quarter: 2013Q2

REPORT INFORMATION
  Report Type: Spontaneous
  Country: FR (occurrence: None)
  Receive Date: 20130628
  Receipt Date: 20130628
  Transmission Date: 20140414
  Serious: Yes (Hospitalization)
  Sender: FDA-Public Use
  Company Number: SYM-2013-05190

PATIENT
  Age: 75 Year
  Sex: Male

DRUGS (2)
  1. FLAGYL [Suspect]
     Indication: DIVERTICULITIS
     Route: 048
     Dates: start: 20130422, end: 20130426
  2. CIFLOX [Suspect]
     Indication: DIVERTICULITIS
     Route: 048
     Dates: start: 20130422, end: 20130426

REACTIONS (1)
  - Vascular purpura [None]
